FAERS Safety Report 7094730-3 (Version None)
Quarter: 2010Q4

REPORT INFORMATION
  Report Type: 
  Country: None (occurrence: None)
  Receive Date: 20101110
  Receipt Date: 20080714
  Transmission Date: 20110411
  Serious: No
  Sender: FDA-Public Use
  Company Number: US-KINGPHARMUSA00001-K200800828

PATIENT
  Age: 82 Year
  Sex: Female

DRUGS (5)
  1. SKELAXIN [Suspect]
     Indication: MYALGIA
     Dosage: 800 MG, BID
     Route: 048
     Dates: start: 20080710, end: 20080711
  2. PAXIL [Concomitant]
     Dosage: UNK, QD
     Route: 048
     Dates: start: 20030101
  3. ATIVAN [Concomitant]
     Dosage: .5 MG, BID
     Route: 048
  4. EYE SHOTS [Concomitant]
     Indication: MACULAR DEGENERATION
     Dosage: EVERY TWO MONTHS
     Route: 031
  5. ANTIARRHYTHMIA MED [Concomitant]
     Indication: ARRHYTHMIA
     Route: 048

REACTIONS (2)
  - DIPLOPIA [None]
  - VISION BLURRED [None]
